FAERS Safety Report 8008102-8 (Version None)
Quarter: 2011Q4

REPORT INFORMATION
  Report Type: 
  Country: None (occurrence: None)
  Receive Date: 20111227
  Receipt Date: 20111221
  Transmission Date: 20120403
  Serious: Yes (Hospitalization)
  Sender: FDA-Public Use
  Company Number: PHHY2011US46319

PATIENT
  Age: 57 Year
  Sex: Female
  Weight: 60 kg

DRUGS (10)
  1. LIPITOR [Concomitant]
     Indication: BLOOD CHOLESTEROL INCREASED
     Dosage: 40 MG, DAILY
     Route: 048
     Dates: start: 20090615
  2. GLATIRAMER ACETATE [Concomitant]
  3. PROVIGIL [Concomitant]
     Indication: FATIGUE
     Dosage: 100 MG, DAILY
     Route: 048
     Dates: start: 20060215
  4. EFFEXOR XR [Concomitant]
     Indication: DEPRESSION
     Dosage: 150 MG, DAILY
     Route: 048
     Dates: start: 20090212
  5. GABAPENTIN [Concomitant]
     Indication: PARAESTHESIA
     Dosage: 600 MG, DAILY
     Route: 048
     Dates: start: 20050428
  6. NEXIUM [Concomitant]
     Indication: GASTROOESOPHAGEAL REFLUX DISEASE
     Dosage: 40 MG, DAILY
     Route: 048
     Dates: start: 20040101
  7. TYSABRI [Concomitant]
     Indication: MULTIPLE SCLEROSIS
     Dosage: 1 DF, QW31D
     Dates: start: 20100608
  8. INTERFERON BETA-1B [Suspect]
     Indication: MULTIPLE SCLEROSIS
     Route: 058
     Dates: start: 20061201, end: 20070215
  9. MINOCYCLINE HCL [Concomitant]
     Indication: MALAISE
     Dosage: 200 MG, DAILY
     Route: 048
     Dates: start: 20090205
  10. BACLOFEN [Concomitant]
     Indication: MUSCLE SPASTICITY
     Dosage: 20 MG, DAILY
     Dates: start: 20050604

REACTIONS (1)
  - SINUSITIS [None]
